FAERS Safety Report 4423261-1 (Version None)
Quarter: 2004Q3

REPORT INFORMATION
  Report Type: 
  Country: None (occurrence: None)
  Receive Date: 20040810
  Receipt Date: 20040810
  Transmission Date: 20050211
  Serious: No
  Sender: FDA-Public Use
  Company Number: None

PATIENT
  Age: 60 Year
  Sex: Female

DRUGS (2)
  1. PEGFILGRASTIM [Suspect]
     Indication: LEUKOPENIA
     Dosage: IM/SQ
     Route: 030
     Dates: start: 20040507, end: 20040507
  2. ROSIGLITAZONE MALEATE [Concomitant]

REACTIONS (3)
  - BACK PAIN [None]
  - GLOSSODYNIA [None]
  - TINNITUS [None]
